FAERS Safety Report 5737408-8 (Version None)
Quarter: 2008Q2

REPORT INFORMATION
  Report Type: 
  Country: None (occurrence: None)
  Receive Date: 20080514
  Receipt Date: 20080206
  Transmission Date: 20081010
  Serious: Yes (Other)
  Sender: FDA-Public Use
  Company Number: US-BRISTOL-MYERS SQUIBB COMPANY-14068266

PATIENT

DRUGS (4)
  1. IXEMPRA KIT [Suspect]
  2. H1 ANTAGONIST [Concomitant]
     Indication: PREMEDICATION
  3. H2 ANTAGONIST [Concomitant]
     Indication: PREMEDICATION
  4. DEXAMETHASONE [Concomitant]
     Indication: PREMEDICATION

REACTIONS (3)
  - BONE MARROW FAILURE [None]
  - NAUSEA [None]
  - VOMITING [None]
